FAERS Safety Report 10781580 (Version 3)
Quarter: 2015Q1

REPORT INFORMATION
  Report Type: Spontaneous
  Country: IT (occurrence: IT)
  Receive Date: 20150210
  Receipt Date: 20150219
  Transmission Date: 20150721
  Serious: Yes (Life-Threatening)
  Sender: FDA-Public Use
  Company Number: IT-TEVA-538199ISR

PATIENT
  Age: 54 Year
  Sex: Female
  Weight: 57 kg

DRUGS (10)
  1. FLUOROURACILE TEVA - TEVA ITALIA S.R.L. [Suspect]
     Active Substance: FLUOROURACIL
     Indication: BREAST CANCER
     Dosage: 795 MG CYCLICAL
     Route: 042
     Dates: start: 20141017, end: 20141107
  2. LONQUEX - 6 MG SOLUZIONE INIETTABILE TEVA PHARMA B.V. [Concomitant]
     Indication: NEUTROPENIA
     Route: 058
     Dates: start: 20141107, end: 20141107
  3. EUTIROX MERCK SERONO S.P.A. [Concomitant]
     Indication: POST PROCEDURAL HYPOTHYROIDISM
     Route: 048
  4. FARMORUBICINA - PFIZER LIMITED [Suspect]
     Active Substance: EPIRUBICIN HYDROCHLORIDE
     Dosage: 143 MG CYCLICAL
     Route: 042
     Dates: start: 20141017, end: 20141107
  5. EMEND - 125 MG CAPSULA RIGIDA MERCK SHARP + DOHME LIMITED [Concomitant]
     Indication: PROPHYLAXIS OF NAUSEA AND VOMITING
     Route: 048
     Dates: start: 20141107, end: 20141109
  6. OMEPRAZOLE. [Concomitant]
     Active Substance: OMEPRAZOLE
     Indication: ABDOMINAL PAIN UPPER
     Route: 048
  7. ENDOXAN BAXTER - BAXTER S.P.A [Suspect]
     Active Substance: CYCLOPHOSPHAMIDE
     Indication: BREAST CANCER
     Dosage: 795 MG CYCLICAL
     Route: 042
     Dates: start: 20141017, end: 20141107
  8. ALOXI - 250 MCG SOLUZIONE INIETTABILE HELSINN BIREX PHARMACEUTICALS LT [Concomitant]
     Indication: PROPHYLAXIS OF NAUSEA AND VOMITING
     Route: 042
     Dates: start: 20141107, end: 20141107
  9. RANITIDINE [Concomitant]
     Active Substance: RANITIDINE\RANITIDINE HYDROCHLORIDE
     Indication: ABDOMINAL PAIN UPPER
     Route: 042
     Dates: start: 20141107, end: 20141107
  10. DEXAMETHASONE DISODIUM PHOSPHATE [Concomitant]
     Active Substance: DEXAMETHASONE SODIUM PHOSPHATE
     Indication: PROPHYLAXIS OF NAUSEA AND VOMITING
     Route: 042
     Dates: start: 20141107, end: 20141107

REACTIONS (4)
  - Septic shock [Recovered/Resolved]
  - Colitis [Recovered/Resolved]
  - Enteritis [Recovered/Resolved]
  - Pancytopenia [Recovered/Resolved]

NARRATIVE: CASE EVENT DATE: 20141115
